FAERS Safety Report 8928481 (Version 1)
Quarter: 2012Q4

REPORT INFORMATION
  Report Type: Spontaneous
  Country: NL (occurrence: None)
  Receive Date: 20121119
  Receipt Date: 20121119
  Transmission Date: 20130627
  Serious: Yes (Hospitalization)
  Sender: FDA-Public Use
  Company Number: ACET20120025

PATIENT
  Age: 72 Year
  Sex: Female

DRUGS (4)
  1. Q-PAP EXTRA STRENGTH [Suspect]
     Indication: PRODUCT USED FOR UNKNOWN INDICATION
     Route: 048
     Dates: start: 201208
  2. FLUCLOXACILLIN [Suspect]
     Indication: STAPHYLOCOCCAL INFECTION
     Route: 042
     Dates: start: 2012, end: 201208
  3. METFORMIN HYDROCHLORIDE TABLETS(METFORMIN)(UNKNOWN)(METFORMIN) [Concomitant]
  4. CARBASALATE CALCIUM(CARBASALATE CALCIUM)(UNKNOWN)(CARBASALATE CALCIUM) [Concomitant]

REACTIONS (7)
  - Dyspnoea [None]
  - Metabolic acidosis [None]
  - Lethargy [None]
  - Tachypnoea [None]
  - Blood pressure increased [None]
  - Atrial fibrillation [None]
  - Hypoalbuminaemia [None]
